FAERS Safety Report 21479201 (Version 1)
Quarter: 2022Q4

REPORT INFORMATION
  Report Type: Spontaneous
  Country: IL (occurrence: IL)
  Receive Date: 20221019
  Receipt Date: 20221019
  Transmission Date: 20230113
  Serious: Yes (Other)
  Sender: FDA-Public Use
  Company Number: IL-GSK-IL2022GSK148938

PATIENT

DRUGS (1)
  1. VALACYCLOVIR [Suspect]
     Active Substance: VALACYCLOVIR HYDROCHLORIDE
     Indication: Infection prophylaxis
     Dosage: 4 G, BID
     Route: 064

REACTIONS (3)
  - Congenital cytomegalovirus infection [Unknown]
  - Vertical infection transmission [Unknown]
  - Foetal exposure during pregnancy [Unknown]
